FAERS Safety Report 6355241-3 (Version None)
Quarter: 2009Q3

REPORT INFORMATION
  Report Type: 
  Country: None (occurrence: None)
  Receive Date: 20090909
  Receipt Date: 20090826
  Transmission Date: 20100115
  Serious: Yes (Hospitalization, Other)
  Sender: FDA-Public Use
  Company Number: CERZ-1000894

PATIENT
  Age: 5 Year
  Sex: Female

DRUGS (1)
  1. CEREZYME [Suspect]
     Indication: GAUCHER'S DISEASE
     Dosage: 60 U/KG, Q2W, INTRAVENOUS
     Route: 042

REACTIONS (4)
  - BLOOD LACTATE DEHYDROGENASE INCREASED [None]
  - HYPERSPLENISM [None]
  - LEUKOCYTOSIS [None]
  - LYMPHADENOPATHY [None]
